FAERS Safety Report 12973015 (Version 2)
Quarter: 2017Q1

REPORT INFORMATION
  Report Type: Report from Study
  Country: US (occurrence: US)
  Receive Date: 20161124
  Receipt Date: 20170224
  Transmission Date: 20170428
  Serious: Yes (Hospitalization)
  Sender: FDA-Public Use
  Company Number: US-VELOXIS PHARMACEUTICALS-1060041

PATIENT
  Age: 50 Year
  Sex: Female
  Weight: 95 kg

DRUGS (29)
  1. HYDRALAZINE HYDROCHLORIDE. [Concomitant]
     Active Substance: HYDRALAZINE HYDROCHLORIDE
  2. NORVASC [Concomitant]
     Active Substance: AMLODIPINE BESYLATE
  3. MAGNESIUM OXIDE. [Concomitant]
     Active Substance: MAGNESIUM OXIDE
  4. BACTRIM [Concomitant]
     Active Substance: SULFAMETHOXAZOLE\TRIMETHOPRIM
  5. LIDOCAINE. [Concomitant]
     Active Substance: LIDOCAINE
  6. CALCIUM ASCORBATE [Concomitant]
     Active Substance: CALCIUM ASCORBATE
  7. MIRALAX [Concomitant]
     Active Substance: POLYETHYLENE GLYCOL 3350
  8. ENVARSUS XR [Suspect]
     Active Substance: TACROLIMUS
  9. CLONIDINE HYDROCHLORIDE. [Concomitant]
     Active Substance: CLONIDINE HYDROCHLORIDE
  10. DOCUSATE SODIUM. [Concomitant]
     Active Substance: DOCUSATE SODIUM
  11. PROGRAF [Suspect]
     Active Substance: TACROLIMUS\TACROLIMUS ANHYDROUS
  12. IMMUNE GLOBULIN NOS [Concomitant]
     Active Substance: IMMUNE GLOBULIN NOS
     Dates: start: 20161114, end: 20161114
  13. PERCOCET [Concomitant]
     Active Substance: ACETAMINOPHEN\OXYCODONE HYDROCHLORIDE
  14. CLONIDINE. [Concomitant]
     Active Substance: CLONIDINE
  15. PEPCID [Concomitant]
     Active Substance: FAMOTIDINE
  16. NYSTATIN. [Concomitant]
     Active Substance: NYSTATIN
  17. IMMUNE GLOBULIN NOS [Concomitant]
     Active Substance: IMMUNE GLOBULIN NOS
     Dates: start: 20161113, end: 20161113
  18. ENVARSUS XR [Suspect]
     Active Substance: TACROLIMUS
     Indication: PROPHYLAXIS AGAINST TRANSPLANT REJECTION
  19. AMPICILLIN (AMPICILLIN TRIHYDRATE) [Concomitant]
     Active Substance: AMPICILLIN TRIHYDRATE
  20. METOPROLOL TARTATE [Concomitant]
     Active Substance: METOPROLOL TARTRATE
  21. METOPROLOL TARTATE [Concomitant]
     Active Substance: METOPROLOL TARTRATE
  22. CELLCEPT [Concomitant]
     Active Substance: MYCOPHENOLATE MOFETIL\MYCOPHENOLATE MOFETIL HYDROCHLORIDE
  23. PERCOCET [Concomitant]
     Active Substance: ACETAMINOPHEN\OXYCODONE HYDROCHLORIDE
  24. NORVASC [Concomitant]
     Active Substance: AMLODIPINE BESYLATE
  25. BACTRIM [Concomitant]
     Active Substance: SULFAMETHOXAZOLE\TRIMETHOPRIM
  26. VALCYTE [Concomitant]
     Active Substance: VALGANCICLOVIR HYDROCHLORIDE
  27. ASPIRIN. [Concomitant]
     Active Substance: ASPIRIN
  28. CALCIUM CARBONATE. [Concomitant]
     Active Substance: CALCIUM CARBONATE
  29. SODIUM CHLORIDE. [Concomitant]
     Active Substance: SODIUM CHLORIDE

REACTIONS (9)
  - Acute kidney injury [Unknown]
  - Bradycardia [Recovered/Resolved]
  - Hypomagnesaemia [Unknown]
  - Hepatic siderosis [Unknown]
  - Hypokalaemia [Unknown]
  - Spleen disorder [Unknown]
  - Hypophosphataemia [Unknown]
  - Cellulitis [Recovered/Resolved]
  - Wound infection [Recovered/Resolved with Sequelae]

NARRATIVE: CASE EVENT DATE: 20161028
